FAERS Safety Report 6748415-0 (Version None)
Quarter: 2010Q2

REPORT INFORMATION
  Report Type: 
  Country: None (occurrence: None)
  Receive Date: 20100527
  Receipt Date: 20100527
  Transmission Date: 20101027
  Serious: No
  Sender: FDA-Public Use
  Company Number: None

PATIENT
  Sex: Female
  Weight: 68.0396 kg

DRUGS (1)
  1. CYMBALTA [Suspect]

REACTIONS (7)
  - ABNORMAL BEHAVIOUR [None]
  - ABNORMAL SLEEP-RELATED EVENT [None]
  - CONSTIPATION [None]
  - DEPRESSED MOOD [None]
  - FEAR [None]
  - SLEEP TERROR [None]
  - SUICIDAL IDEATION [None]
